FAERS Safety Report 5094964-3 (Version None)
Quarter: 2006Q3

REPORT INFORMATION
  Report Type: 
  Country: None (occurrence: None)
  Receive Date: 20060901
  Receipt Date: 20060413
  Transmission Date: 20061208
  Serious: Yes (Other)
  Sender: FDA-Public Use
  Company Number: PHFR2006GB01468

PATIENT
  Sex: Male

DRUGS (1)
  1. ZOMETA [Suspect]
     Route: 065

REACTIONS (7)
  - DENTAL OPERATION [None]
  - HAEMORRHAGE [None]
  - LOCALISED INFECTION [None]
  - POST PROCEDURAL COMPLICATION [None]
  - TEETH BRITTLE [None]
  - TOOTH DISORDER [None]
  - TOOTH EXTRACTION [None]
